FAERS Safety Report 8111166-4 (Version None)
Quarter: 2012Q1

REPORT INFORMATION
  Report Type: 
  Country: None (occurrence: None)
  Receive Date: 20120203
  Receipt Date: 20110518
  Transmission Date: 20120608
  Serious: No
  Sender: FDA-Public Use
  Company Number: US-GLAXOSMITHKLINE-A0929240A

PATIENT
  Sex: Female

DRUGS (1)
  1. LAMICTAL [Suspect]
     Indication: AFFECTIVE DISORDER
     Dosage: 300MG PER DAY
     Route: 048
     Dates: start: 20110201

REACTIONS (6)
  - PARAESTHESIA ORAL [None]
  - ARTHROPOD BITE [None]
  - DRUG INEFFECTIVE [None]
  - FEELING JITTERY [None]
  - SEDATION [None]
  - RASH [None]
